FAERS Safety Report 17171596 (Version 1)
Quarter: 2019Q4

REPORT INFORMATION
  Report Type: Spontaneous
  Country: GB (occurrence: GB)
  Receive Date: 20191218
  Receipt Date: 20191218
  Transmission Date: 20200122
  Serious: Yes (Hospitalization, Other)
  Sender: FDA-Public Use
  Company Number: GB-JNJFOC-20191219775

PATIENT
  Age: 87 Year
  Sex: Female
  Weight: 95 kg

DRUGS (11)
  1. XARELTO [Suspect]
     Active Substance: RIVAROXABAN
     Indication: ATRIAL FIBRILLATION
     Dosage: 20 MG
     Route: 048
     Dates: start: 20150106
  2. PIZOTIFEN [Concomitant]
     Active Substance: PIZOTYLINE
     Dosage: AT NIGHT
     Dates: start: 20191007
  3. FUROSEMIDE. [Concomitant]
     Active Substance: FUROSEMIDE
     Dosage: IN THE MORNING
     Dates: start: 20191007
  4. BISOPROLOL [Concomitant]
     Active Substance: BISOPROLOL
     Dosage: 5 MG, QD
     Dates: start: 20191007
  5. DOXYCYCLINE. [Concomitant]
     Active Substance: DOXYCYCLINE
     Dosage: 200 MG, QD
     Dates: start: 20191018
  6. FEBUXOSTAT. [Concomitant]
     Active Substance: FEBUXOSTAT
     Dosage: 80 MG, QD
     Dates: start: 20191007, end: 20191112
  7. PERINDOPRIL TERT-BUTYLAMINE [Concomitant]
     Active Substance: PERINDOPRIL ERBUMINE
     Dates: start: 20191007
  8. SIMVASTATIN. [Concomitant]
     Active Substance: SIMVASTATIN
     Dosage: AT NIGHT
     Dates: start: 20191007
  9. SPIRONOLACTONE. [Concomitant]
     Active Substance: SPIRONOLACTONE
     Dates: start: 20191007
  10. HYDROMOL [Concomitant]
     Dosage: USE AS DIRECTED
     Dates: start: 20191007
  11. COLCHICINE. [Concomitant]
     Active Substance: COLCHICINE
     Dosage: 2-4 TIMES A DAY UNTIL SYMPTOMS RELIEVED
     Dates: start: 20191007, end: 20191112

REACTIONS (2)
  - Epistaxis [Recovered/Resolved]
  - Thrombosis [Unknown]

NARRATIVE: CASE EVENT DATE: 20191116
